FAERS Safety Report 4404559-X (Version None)
Quarter: 2004Q3

REPORT INFORMATION
  Report Type: 
  Country: None (occurrence: None)
  Receive Date: 20040722
  Receipt Date: 20040629
  Transmission Date: 20050211
  Serious: Yes (Hospitalization)
  Sender: FDA-Public Use
  Company Number: US-ROCHE-372670

PATIENT
  Age: 47 Year
  Sex: Female

DRUGS (2)
  1. PEGASYS [Suspect]
     Dosage: DOSAGE REGIMEN WAS REPORTED TO BE UNKNOWN
     Route: 058
     Dates: start: 20031117, end: 20040615
  2. COPEGUS [Suspect]
     Dosage: DOSAGE REGIMEN WAS REPORTED TO BE UNKNOWN
     Route: 048
     Dates: start: 20031117, end: 20040615

REACTIONS (8)
  - BACK PAIN [None]
  - BLOOD CHOLESTEROL INCREASED [None]
  - DEHYDRATION [None]
  - DIARRHOEA [None]
  - DISTURBANCE IN ATTENTION [None]
  - THYROID DISORDER [None]
  - VOMITING [None]
  - WHITE BLOOD CELL COUNT DECREASED [None]
